FAERS Safety Report 4469605-6 (Version None)
Quarter: 2004Q4

REPORT INFORMATION
  Report Type: 
  Country: None (occurrence: None)
  Receive Date: 20041008
  Receipt Date: 20040917
  Transmission Date: 20050328
  Serious: Yes (Other)
  Sender: FDA-Public Use
  Company Number: JP-MERCK-0409USA01795

PATIENT
  Age: 50 Year
  Sex: Female

DRUGS (2)
  1. PROMETHAZINE HYDROCHLORIDE [Concomitant]
     Route: 048
     Dates: end: 20040921
  2. ZOCOR [Suspect]
     Indication: HYPERLIPIDAEMIA
     Route: 048
     Dates: start: 20040501, end: 20040910

REACTIONS (3)
  - BLOOD CREATINE PHOSPHOKINASE INCREASED [None]
  - MALAISE [None]
  - MYOGLOBIN BLOOD INCREASED [None]
